FAERS Safety Report 10083199 (Version 1)
Quarter: 2014Q2

REPORT INFORMATION
  Report Type: Spontaneous
  Country: US (occurrence: US)
  Receive Date: 20140417
  Receipt Date: 20140417
  Transmission Date: 20141212
  Serious: Yes (Other)
  Sender: FDA-Public Use
  Company Number: US-ASTRAZENECA-2014SE25678

PATIENT
  Age: 777 Month
  Sex: Female
  Weight: 80.3 kg

DRUGS (10)
  1. SYMBICORT [Suspect]
     Indication: ASTHMA
     Dosage: 80/4.5 MCG, 2 PUFFS, TWO TIMES A DAY
     Route: 055
     Dates: start: 2012
  2. OMEPRAZOLE [Suspect]
     Route: 048
  3. FOLIC ACID [Concomitant]
     Indication: CHEMOTHERAPY
  4. MULTIVITAMINS [Concomitant]
  5. VITAMIN B COMPLEX [Concomitant]
  6. CALCIUM [Concomitant]
     Indication: OSTEOPENIA
  7. STEROIDS [Concomitant]
     Dates: start: 2013
  8. ALIMTA [Concomitant]
     Dosage: CHEMOTHERAPEUTIC MEDICATION
  9. AVASTIN [Concomitant]
     Dosage: CHEMOTHERAPEUTIC MEDICATION
  10. CARBOPLATIN [Concomitant]
     Dosage: CHEMOTHERAPEUTIC MEDICATION

REACTIONS (5)
  - Neoplasm malignant [Unknown]
  - Memory impairment [Unknown]
  - Lip injury [Unknown]
  - Intentional product misuse [Unknown]
  - Circumstance or information capable of leading to medication error [Unknown]
